FAERS Safety Report 8018430-8 (Version None)
Quarter: 2012Q1

REPORT INFORMATION
  Report Type: 
  Country: None (occurrence: None)
  Receive Date: 20120103
  Receipt Date: 20111223
  Transmission Date: 20120608
  Serious: Yes (Hospitalization)
  Sender: FDA-Public Use
  Company Number: GB-NOVOPROD-341942

PATIENT

DRUGS (9)
  1. LEVOTHYROXINE SODIUM [Concomitant]
  2. GLIMEPIRIDE [Concomitant]
  3. VICTOZA [Suspect]
     Indication: PRODUCT USED FOR UNKNOWN INDICATION
     Dosage: 0.6 MG, QD
     Route: 058
     Dates: start: 20100408
  4. METFORMIN HCL [Concomitant]
  5. BEZAFIBRATE [Concomitant]
  6. OMEPRAZOLE [Concomitant]
  7. RAMIPRIL [Concomitant]
  8. AMITRIPTYLINE HCL [Concomitant]
  9. VENLAFAXINE [Concomitant]

REACTIONS (1)
  - COLONIC POLYP [None]
